FAERS Safety Report 9163425 (Version 1)
Quarter: 2013Q1

REPORT INFORMATION
  Report Type: Spontaneous
  Country: GB (occurrence: GB)
  Receive Date: 20130314
  Receipt Date: 20130314
  Transmission Date: 20140127
  Serious: Yes (Other)
  Sender: FDA-Public Use
  Company Number: GB-ELI_LILLY_AND_COMPANY-GB201303000836

PATIENT
  Age: 58 Year
  Sex: Male
  Weight: 148.8 kg

DRUGS (9)
  1. EXENATIDE [Suspect]
     Dosage: UNK, UNKNOWN
     Dates: start: 20130219
  2. ASPIRIN [Concomitant]
     Dosage: UNK
     Dates: start: 20121024
  3. DOXAZOSIN [Concomitant]
     Dosage: UNK
     Dates: start: 20130205
  4. GLICLAZIDE [Concomitant]
     Dosage: UNK
     Dates: start: 20121024
  5. INDAPAMIDE [Concomitant]
     Dosage: UNK
     Dates: start: 20121024
  6. LERCANIDIPINE HYDROCHLORIDE [Concomitant]
     Dosage: UNK
     Dates: start: 20121024
  7. LISINOPRIL [Concomitant]
     Dosage: UNK
     Dates: start: 20121024
  8. METFORMIN [Concomitant]
     Dosage: UNK
     Dates: start: 20121024
  9. SIMVASTATIN [Concomitant]
     Dosage: UNK
     Dates: start: 20121024

REACTIONS (1)
  - Hepatic function abnormal [Recovering/Resolving]
